FAERS Safety Report 5796706-2 (Version None)
Quarter: 2008Q2

REPORT INFORMATION
  Report Type: 
  Country: None (occurrence: None)
  Receive Date: 20080630
  Receipt Date: 20080630
  Transmission Date: 20081010
  Serious: No
  Sender: FDA-Public Use
  Company Number: None

PATIENT
  Age: 71 Year
  Sex: Female
  Weight: 128.8216 kg

DRUGS (1)
  1. MICARDIS HCT [Suspect]
     Indication: BLOOD PRESSURE
     Dosage: 1 PER DAY
     Dates: start: 20080616, end: 20080629

REACTIONS (4)
  - MUSCULOSKELETAL PAIN [None]
  - MUSCULOSKELETAL STIFFNESS [None]
  - NECK PAIN [None]
  - PAIN [None]
